FAERS Safety Report 6596831-2 (Version None)
Quarter: 2010Q1

REPORT INFORMATION
  Report Type: 
  Country: None (occurrence: None)
  Receive Date: 20100223
  Receipt Date: 20100217
  Transmission Date: 20100710
  Serious: Yes (Other)
  Sender: FDA-Public Use
  Company Number: GB-JNJCH-2010004621

PATIENT
  Sex: Female

DRUGS (3)
  1. NICORETTE INVISI PATCH [Suspect]
     Indication: SMOKING CESSATION THERAPY
     Route: 062
  2. NICORETTE [Suspect]
     Indication: SMOKING CESSATION THERAPY
     Dosage: TEXT:1 CARTIDGE PER DAY
     Route: 055
  3. INSULIN [Concomitant]
     Indication: DIABETES MELLITUS
     Dosage: TEXT:UNKNOWN
     Route: 030

REACTIONS (4)
  - BLOOD GLUCOSE INCREASED [None]
  - DIZZINESS [None]
  - HYPOGLYCAEMIA [None]
  - OVERDOSE [None]
